FAERS Safety Report 4767038-6 (Version None)
Quarter: 2005Q3

REPORT INFORMATION
  Report Type: 
  Country: None (occurrence: None)
  Receive Date: 20050913
  Receipt Date: 20050905
  Transmission Date: 20060218
  Serious: Yes (Hospitalization)
  Sender: FDA-Public Use
  Company Number: FR-JNJFOC-20050105891

PATIENT
  Age: 8 Year
  Sex: Female
  Weight: 24 kg

DRUGS (13)
  1. REMICADE [Suspect]
     Route: 042
  2. REMICADE [Suspect]
     Route: 042
  3. REMICADE [Suspect]
     Route: 042
  4. REMICADE [Suspect]
     Route: 042
  5. REMICADE [Suspect]
     Route: 042
  6. REMICADE [Suspect]
     Route: 042
  7. REMICADE [Suspect]
     Route: 042
  8. REMICADE [Suspect]
     Route: 042
  9. REMICADE [Suspect]
     Route: 042
  10. CORTANCYL [Concomitant]
     Indication: UVEITIS
     Route: 048
  11. CALCIUM GLUCONATE [Concomitant]
     Route: 048
  12. VEXOL [Concomitant]
     Indication: UVEITIS
     Route: 047
  13. GLUCONATE DE POTASSIUM [Concomitant]

REACTIONS (3)
  - PANCYTOPENIA [None]
  - PYREXIA [None]
  - VISCERAL LEISHMANIASIS [None]
